FAERS Safety Report 12391576 (Version 2)
Quarter: 2017Q3

REPORT INFORMATION
  Report Type: Spontaneous
  Country: CO (occurrence: CO)
  Receive Date: 20160521
  Receipt Date: 20170725
  Transmission Date: 20171127
  Serious: Yes (Hospitalization, Other)
  Sender: FDA-Public Use
  Company Number: CO-AUROBINDO-AUR-APL-2016-06283

PATIENT
  Age: 71 Year
  Sex: Male

DRUGS (5)
  1. HYDROCHLOROTHIAZIDE. [Concomitant]
     Active Substance: HYDROCHLOROTHIAZIDE
     Indication: HYPERTENSION
  2. ALLOPURINOL. [Concomitant]
     Active Substance: ALLOPURINOL
     Indication: HYPERURICAEMIA
  3. BISOPROLOL [Concomitant]
     Active Substance: BISOPROLOL
     Indication: HYPERTENSION
  4. AMOXICILLIN. [Suspect]
     Active Substance: AMOXICILLIN
     Indication: CELLULITIS
     Dosage: UNK
     Route: 065
  5. LOSARTAN. [Concomitant]
     Active Substance: LOSARTAN
     Indication: HYPERTENSION

REACTIONS (5)
  - Meningitis aseptic [Recovered/Resolved]
  - Gait disturbance [Recovered/Resolved]
  - Headache [None]
  - Photophobia [Recovered/Resolved]
  - Nausea [None]
